FAERS Safety Report 4664448-2 (Version None)
Quarter: 2005Q2

REPORT INFORMATION
  Report Type: 
  Country: None (occurrence: None)
  Receive Date: 20050518
  Receipt Date: 20050506
  Transmission Date: 20051028
  Serious: Yes (Other)
  Sender: FDA-Public Use
  Company Number: US-JNJFOC-20050500567

PATIENT
  Sex: Female
  Weight: 62.14 kg

DRUGS (5)
  1. REMICADE [Suspect]
     Indication: CROHN'S DISEASE
     Dosage: 4 1/2 YEARS.
     Route: 042
  2. AZATHIOPRINE [Concomitant]
  3. ASACOL [Concomitant]
  4. MINOCYCLINE HCL [Concomitant]
     Indication: ACNE
  5. PREDNISONE [Concomitant]

REACTIONS (10)
  - ANTI-PLATELET ANTIBODY [None]
  - ANTINUCLEAR ANTIBODY POSITIVE [None]
  - DYSURIA [None]
  - EPSTEIN-BARR VIRUS INFECTION [None]
  - HAEMOLYTIC ANAEMIA [None]
  - HEPATIC ENZYME INCREASED [None]
  - HEPATIC FAILURE [None]
  - PYREXIA [None]
  - RENAL FAILURE [None]
  - SYSTEMIC LUPUS ERYTHEMATOSUS [None]
